FAERS Safety Report 4433729-X (Version None)
Quarter: 2004Q3

REPORT INFORMATION
  Report Type: 
  Country: None (occurrence: None)
  Receive Date: 20040825
  Receipt Date: 20040806
  Transmission Date: 20050211
  Serious: Yes (Hospitalization, Other)
  Sender: FDA-Public Use
  Company Number: USA040465629

PATIENT
  Age: 89 Year
  Sex: Female

DRUGS (4)
  1. FORTEO [Suspect]
     Dates: start: 20040101
  2. SYNTHROID [Concomitant]
  3. PLAQUENIL [Concomitant]
  4. MULTIVITAMIN [Concomitant]

REACTIONS (5)
  - ANEURYSM [None]
  - CARDIAC VALVE DISEASE [None]
  - FALL [None]
  - HIP FRACTURE [None]
  - RIB FRACTURE [None]
